FAERS Safety Report 8618672-4 (Version None)
Quarter: 2012Q3

REPORT INFORMATION
  Report Type: 
  Country: None (occurrence: None)
  Receive Date: 20120810
  Receipt Date: 20120726
  Transmission Date: 20120928
  Serious: Yes (Other)
  Sender: FDA-Public Use
  Company Number: TPA2012A05127

PATIENT
  Age: 66 Year
  Sex: Male

DRUGS (5)
  1. CETIRIZINE HYDROCHLORIDE [Concomitant]
  2. TRIAMCINOLONE ACETONIDE [Concomitant]
  3. ACTOS [Suspect]
     Indication: TYPE 2 DIABETES MELLITUS
     Dosage: 15 MG, 30 MG
     Dates: start: 20040112, end: 20051226
  4. ACTOS [Suspect]
     Indication: TYPE 2 DIABETES MELLITUS
     Dosage: 15 MG, 30 MG
     Dates: start: 20051227, end: 20120301
  5. CAPTOPRIL [Concomitant]

REACTIONS (1)
  - BLADDER TRANSITIONAL CELL CARCINOMA [None]
